FAERS Safety Report 12663014 (Version 1)
Quarter: 2016Q3

REPORT INFORMATION
  Report Type: Spontaneous
  Country: US (occurrence: US)
  Receive Date: 20160818
  Receipt Date: 20160818
  Transmission Date: 20161109
  Serious: No
  Sender: FDA-Public Use
  Company Number: US-BAYER-2016-153862

PATIENT
  Age: 24 Year
  Sex: Female
  Weight: 63.49 kg

DRUGS (2)
  1. CLARITIN REDITABS [Suspect]
     Active Substance: LORATADINE
     Indication: FOOD ALLERGY
     Dosage: 1 DF, QD
     Route: 048
     Dates: start: 20160725
  2. CLARITIN REDITABS [Suspect]
     Active Substance: LORATADINE
     Indication: HYPERSENSITIVITY

REACTIONS (1)
  - Therapeutic response unexpected [None]

NARRATIVE: CASE EVENT DATE: 20160725
